FAERS Safety Report 7277491-4 (Version None)
Quarter: 2011Q1

REPORT INFORMATION
  Report Type: 
  Country: None (occurrence: None)
  Receive Date: 20110207
  Receipt Date: 20110124
  Transmission Date: 20110831
  Serious: Yes (Hospitalization, Other)
  Sender: FDA-Public Use
  Company Number: US-ELI_LILLY_AND_COMPANY-US201011003932

PATIENT
  Sex: Female
  Weight: 58.05 kg

DRUGS (7)
  1. QUINAPRIL [Concomitant]
     Dosage: 40 MG, DAILY (1/D)
  2. POSTURE D [Concomitant]
     Dosage: UNK, 2/D
  3. HYDROCHLOROTHIAZIDE [Concomitant]
     Dosage: 25 MG, DAILY (1/D)
  4. BYSTOLIC [Concomitant]
     Dosage: 10 MG, DAILY (1/D)
  5. FORTEO [Suspect]
     Indication: OSTEOPOROSIS
     Dosage: 20 UG, DAILY (1/D)
     Route: 058
     Dates: start: 20100312
  6. FORTEO [Suspect]
     Dosage: 20 UG, DAILY (1/D)
  7. VESICARE [Concomitant]
     Indication: HYPERTONIC BLADDER

REACTIONS (2)
  - FALL [None]
  - PELVIC FRACTURE [None]
